FAERS Safety Report 10399654 (Version 3)
Quarter: 2014Q3

REPORT INFORMATION
  Report Type: Report from Study
  Country: US (occurrence: US)
  Receive Date: 20140821
  Receipt Date: 20140826
  Transmission Date: 20150326
  Serious: Yes (Other)
  Sender: FDA-Public Use
  Company Number: PHEH2014US009091

PATIENT
  Age: 64 Year
  Sex: Male
  Weight: 94.33 kg

DRUGS (17)
  1. PROCHLORPERAZINE MALEATE. [Concomitant]
     Active Substance: PROCHLORPERAZINE MALEATE
     Dates: start: 20140603
  2. ADVEL [Concomitant]
     Dosage: UNK
     Dates: end: 20140612
  3. TASIGNA [Suspect]
     Active Substance: NILOTINIB
     Indication: CHRONIC MYELOID LEUKAEMIA
     Dosage: 200 MG, BID
     Route: 048
     Dates: start: 20140402, end: 20140406
  4. FISH OIL OMEGA 3 [Concomitant]
     Dates: start: 20140603
  5. TASIGNA [Suspect]
     Active Substance: NILOTINIB
     Dosage: 100 MG, BID
     Route: 048
     Dates: start: 20140409
  6. ATORVASTATIN [Concomitant]
     Active Substance: ATORVASTATIN
     Indication: LIPIDS INCREASED
     Dosage: 20 MG, QD
     Dates: start: 20121219, end: 20121219
  7. ATORVASTATIN [Concomitant]
     Active Substance: ATORVASTATIN
     Dates: start: 20140522, end: 20140606
  8. LEVAQUIN [Concomitant]
     Active Substance: LEVOFLOXACIN
     Dates: start: 20110617, end: 20140620
  9. MEDROL [Concomitant]
     Active Substance: METHYLPREDNISOLONE
  10. PROCHLORPERAZINE MALEATE. [Concomitant]
     Active Substance: PROCHLORPERAZINE MALEATE
     Dates: start: 20140505, end: 20140606
  11. PROCHLORPERAZINE MALEATE. [Concomitant]
     Active Substance: PROCHLORPERAZINE MALEATE
     Dates: start: 20140522
  12. FISH OIL OMEGA 3 [Concomitant]
     Dates: start: 20140522, end: 20140606
  13. ATORVASTATIN [Concomitant]
     Active Substance: ATORVASTATIN
     Dates: start: 20140603
  14. IMODIUM [Concomitant]
     Active Substance: LOPERAMIDE HYDROCHLORIDE
     Dates: end: 20140606
  15. ADVEL [Concomitant]
     Indication: PAIN
     Dates: end: 20140620
  16. ADVEL [Concomitant]
     Dates: end: 20140603
  17. LEVAQUIN [Concomitant]
     Active Substance: LEVOFLOXACIN
     Dosage: UNK
     Dates: start: 20140606, end: 20140612

REACTIONS (7)
  - Abdominal pain [Recovered/Resolved]
  - Lipase increased [Recovered/Resolved]
  - Nausea [Unknown]
  - Pancreatitis [Recovered/Resolved]
  - Abdominal distension [Recovering/Resolving]
  - Vomiting [Unknown]
  - Abdominal pain upper [Unknown]

NARRATIVE: CASE EVENT DATE: 20140406
